FAERS Safety Report 5283702-7 (Version None)
Quarter: 2007Q2

REPORT INFORMATION
  Report Type: 
  Country: None (occurrence: None)
  Receive Date: 20070402
  Receipt Date: 20070321
  Transmission Date: 20071010
  Serious: Yes (Hospitalization)
  Sender: FDA-Public Use
  Company Number: US-SANOFI-SYNTHELABO-A03200702244

PATIENT
  Age: 19 Year
  Sex: Female

DRUGS (2)
  1. ELOXATIN [Suspect]
     Indication: RECTAL CANCER
     Route: 042
  2. FLUOROURACIL [Suspect]
     Indication: RECTAL CANCER
     Route: 042

REACTIONS (3)
  - BLOOD PRESSURE INCREASED [None]
  - CONVULSION [None]
  - REVERSIBLE POSTERIOR LEUKOENCEPHALOPATHY SYNDROME [None]
